FAERS Safety Report 19934311 (Version 1)
Quarter: 2021Q4

REPORT INFORMATION
  Report Type: Report from Study
  Country: US (occurrence: US)
  Receive Date: 20211008
  Receipt Date: 20211008
  Transmission Date: 20220303
  Serious: Yes (Hospitalization)
  Sender: FDA-Public Use
  Company Number: US-JNJFOC-20211004298

PATIENT
  Age: 24 Year
  Sex: Female

DRUGS (3)
  1. SPRAVATO [Suspect]
     Active Substance: ESKETAMINE
     Indication: Depression
     Dosage: 56 MG, TOTAL 5 DOSES
     Dates: start: 20210802, end: 20210823
  2. SPRAVATO [Suspect]
     Active Substance: ESKETAMINE
     Dosage: 84 MG, TOTAL 6 DOSES
     Dates: start: 20210825, end: 20210921
  3. SPRAVATO [Suspect]
     Active Substance: ESKETAMINE
     Dates: start: 20210928, end: 20210928

REACTIONS (4)
  - Disorientation [Unknown]
  - Delusion [Unknown]
  - Oropharyngeal discomfort [Unknown]
  - Dissociation [Unknown]

NARRATIVE: CASE EVENT DATE: 20210928
